FAERS Safety Report 10634024 (Version 2)
Quarter: 2015Q1

REPORT INFORMATION
  Report Type: Spontaneous
  Country: NO (occurrence: None)
  Receive Date: 20141203
  Receipt Date: 20150114
  Transmission Date: 20150720
  Serious: Yes (Other)
  Sender: FDA-Public Use
  Company Number: 20142307

PATIENT
  Age: 46 Year
  Sex: Male

DRUGS (4)
  1. METHOTREXATE [Suspect]
     Active Substance: METHOTREXATE
     Indication: PRODUCT USE ISSUE
  2. FOLIC ACID (FOLIC ACID) [Concomitant]
     Active Substance: FOLIC ACID
  3. METHOTREXATE [Suspect]
     Active Substance: METHOTREXATE
     Indication: SACROILIITIS
  4. HUMIRA [Suspect]
     Active Substance: ADALIMUMAB
     Indication: SACROILIITIS
     Dosage: 1 X IN 14 DAY, SUBCUTANEOUS?
     Route: 058
     Dates: start: 2009

REACTIONS (1)
  - Exostosis [None]

NARRATIVE: CASE EVENT DATE: 2014
